FAERS Safety Report 7754049-1 (Version None)
Quarter: 2011Q3

REPORT INFORMATION
  Report Type: 
  Country: None (occurrence: None)
  Receive Date: 20110913
  Receipt Date: 20110829
  Transmission Date: 20111222
  Serious: Yes (Other)
  Sender: FDA-Public Use
  Company Number: 2011P1008527

PATIENT
  Sex: Male

DRUGS (4)
  1. WARFARIN SODIUM [Suspect]
     Indication: PULMONARY THROMBOSIS
     Dosage: 2.5 MG; QD; PO, 2.5 MG; QD; PO
     Route: 048
     Dates: start: 20110711, end: 20110801
  2. WARFARIN SODIUM [Suspect]
     Indication: PULMONARY THROMBOSIS
     Dosage: 2.5 MG; QD; PO, 2.5 MG; QD; PO
     Route: 048
     Dates: start: 20110801
  3. LORTAB [Concomitant]
  4. FUROSEMIDE [Concomitant]

REACTIONS (1)
  - INTESTINAL OBSTRUCTION [None]
